FAERS Safety Report 10977881 (Version 1)
Quarter: 2015Q2

REPORT INFORMATION
  Report Type: Spontaneous
  Country: ES (occurrence: ES)
  Receive Date: 20150402
  Receipt Date: 20150402
  Transmission Date: 20150821
  Serious: Yes (Other)
  Sender: FDA-Public Use
  Company Number: ES-CIPLA LTD.-2015ES02692

PATIENT

DRUGS (1)
  1. CETIRIZINE [Suspect]
     Active Substance: CETIRIZINE HYDROCHLORIDE
     Indication: LOCAL REACTION
     Dosage: THREE DOSES OF 10 MG, ONE ON THE DAY BEFORE VACCINATION
     Route: 048

REACTIONS (1)
  - Drug-induced liver injury [Recovered/Resolved]
